FAERS Safety Report 6478693-7 (Version None)
Quarter: 2009Q4

REPORT INFORMATION
  Report Type: 
  Country: None (occurrence: None)
  Receive Date: 20091207
  Receipt Date: 20091128
  Transmission Date: 20100525
  Serious: Yes (Other)
  Sender: FDA-Public Use
  Company Number: US-PFIZER INC-2009304478

PATIENT
  Sex: Male
  Weight: 158.75 kg

DRUGS (1)
  1. VIAGRA [Suspect]

REACTIONS (4)
  - DIZZINESS [None]
  - ERECTION INCREASED [None]
  - HALLUCINATION [None]
  - PALLOR [None]
